FAERS Safety Report 7246906-X (Version None)
Quarter: 2011Q1

REPORT INFORMATION
  Report Type: 
  Country: None (occurrence: None)
  Receive Date: 20110127
  Receipt Date: 20110120
  Transmission Date: 20110831
  Serious: Yes (Hospitalization)
  Sender: FDA-Public Use
  Company Number: CH-BRISTOL-MYERS SQUIBB COMPANY-14304703

PATIENT
  Age: 48 Year
  Sex: Female
  Weight: 65 kg

DRUGS (12)
  1. BLACK COHOSH [Concomitant]
     Route: 048
  2. SOLU-MEDROL [Concomitant]
     Route: 041
     Dates: start: 20080519
  3. TAXOL [Suspect]
     Indication: BREAST CANCER IN SITU
     Route: 041
     Dates: start: 20080721
  4. ENDOXAN [Suspect]
     Indication: BREAST CANCER IN SITU
     Dosage: INITIATED ON 19MAY2008 THERAPY DURATION : 50 DAYS
     Route: 041
     Dates: start: 20080519, end: 20080707
  5. PASPERTIN [Concomitant]
     Dosage: TAKEN AS VIALS STRENGTH: 10 MG
     Route: 041
     Dates: start: 20080519
  6. NEULASTA [Suspect]
     Indication: PROPHYLAXIS
     Dosage: TAKEN ON 08JUL2008
     Route: 041
     Dates: start: 20080606, end: 20080708
  7. CIMICIFUGAE RHIZOME [Concomitant]
     Route: 048
  8. ZOFRAN [Concomitant]
     Route: 041
     Dates: start: 20080519
  9. METO ZEROK [Concomitant]
     Indication: HYPERTENSION
     Dosage: COATED TABS STRENGTH: 47.5MG
     Route: 048
  10. METO ZEROK [Concomitant]
     Indication: ESSENTIAL HYPERTENSION
     Dosage: COATED TABS STRENGTH: 47.5MG
     Route: 048
  11. EPIRUBICIN [Suspect]
     Indication: BREAST CANCER IN SITU
     Dosage: TAKEN ON 19MAY2008
     Route: 041
     Dates: start: 20080519, end: 20080707
  12. NEULASTA [Suspect]
     Indication: BREAST CANCER IN SITU
     Dosage: TAKEN ON 08JUL2008
     Route: 041
     Dates: start: 20080606, end: 20080708

REACTIONS (1)
  - LUNG INFILTRATION [None]
